FAERS Safety Report 16805970 (Version 1)
Quarter: 2019Q4

REPORT INFORMATION
  Report Type: Spontaneous
  Country: US (occurrence: US)
  Receive Date: 20190913
  Receipt Date: 20190913
  Transmission Date: 20200122
  Serious: No
  Sender: FDA-Public Use
  Company Number: None

PATIENT
  Age: 59 Year
  Sex: Male
  Weight: 105.75 kg

DRUGS (5)
  1. COENZYME Q10 [Concomitant]
     Active Substance: UBIDECARENONE
  2. VIT D [Concomitant]
     Active Substance: VITAMIN D NOS
  3. FISH OIL [Concomitant]
     Active Substance: FISH OIL
  4. VITAMIN C [Concomitant]
     Active Substance: ASCORBIC ACID
  5. NP THYROID [Suspect]
     Active Substance: LEVOTHYROXINE\LIOTHYRONINE
     Indication: THYROID HORMONE REPLACEMENT THERAPY
     Dosage: ?          QUANTITY:90 TABLET(S);?
     Route: 048
     Dates: start: 20180103

REACTIONS (10)
  - Product taste abnormal [None]
  - Feeling abnormal [None]
  - Paraesthesia [None]
  - Chest pain [None]
  - Back pain [None]
  - Tinnitus [None]
  - Musculoskeletal pain [None]
  - Product odour abnormal [None]
  - Product formulation issue [None]
  - Product physical issue [None]

NARRATIVE: CASE EVENT DATE: 20190913
